FAERS Safety Report 8217402 (Version 11)
Quarter: 2013Q2

REPORT INFORMATION
  Report Type: Spontaneous
  Country: US (occurrence: US)
  Receive Date: 20111101
  Receipt Date: 20130415
  Transmission Date: 20140414
  Serious: Yes (Other)
  Sender: FDA-Public Use
  Company Number: US-AMGEN-USASP2011055542

PATIENT
  Age: 5 Year
  Sex: Male

DRUGS (13)
  1. EPOGEN [Suspect]
     Indication: DIALYSIS
     Dosage: 10000 IU, 5 TIMES/WK
     Route: 058
     Dates: start: 20111018
  2. EPOGEN [Suspect]
     Dosage: 3000 IU, 3 TIMES/WK
     Route: 058
     Dates: start: 20110812
  3. EPOGEN [Suspect]
     Dosage: 2400 IU, 2 TIMES/WK
     Route: 058
     Dates: start: 201010
  4. EPOGEN [Suspect]
     Dates: start: 201110
  5. CALCITRIOL [Concomitant]
     Dosage: UNK
  6. CALCIUM CARBONATE [Concomitant]
     Dosage: UNK
  7. CLONIDINE [Concomitant]
     Dosage: UNK
  8. ENALAPRIL [Concomitant]
     Dosage: UNK
  9. FERROUS SULFATE [Concomitant]
     Dosage: UNK
  10. NEPHROVITE [Concomitant]
     Dosage: UNK
  11. NORVASC [Concomitant]
     Dosage: UNK
  12. PRILOSEC                           /00661201/ [Concomitant]
     Dosage: UNK
  13. ERGOCALCIFEROL [Concomitant]
     Dosage: UNK

REACTIONS (10)
  - Reticulocyte count abnormal [Not Recovered/Not Resolved]
  - Blood erythropoietin decreased [Not Recovered/Not Resolved]
  - Haemoglobin decreased [Not Recovered/Not Resolved]
  - Haematocrit decreased [Not Recovered/Not Resolved]
  - Renal transplant [Recovered/Resolved]
  - Neutralising antibodies positive [Unknown]
  - Anti-erythropoietin antibody positive [Unknown]
  - Aplasia pure red cell [Unknown]
  - Anaemia [Not Recovered/Not Resolved]
  - Iron overload [Not Recovered/Not Resolved]
